FAERS Safety Report 6181381-8 (Version None)
Quarter: 2009Q2

REPORT INFORMATION
  Report Type: 
  Country: None (occurrence: None)
  Receive Date: 20090505
  Receipt Date: 20090505
  Transmission Date: 20091009
  Serious: Yes (Hospitalization)
  Sender: FDA-Public Use
  Company Number: None

PATIENT
  Age: 37 Year
  Sex: Female
  Weight: 121.1104 kg

DRUGS (1)
  1. PAXIL [Suspect]

REACTIONS (3)
  - ANXIETY [None]
  - DRUG HYPERSENSITIVITY [None]
  - NAUSEA [None]
